FAERS Safety Report 23160402 (Version 2)
Quarter: 2023Q4

REPORT INFORMATION
  Report Type: Report from Study
  Country: IN (occurrence: None)
  Receive Date: 20231108
  Receipt Date: 20231113
  Transmission Date: 20240110
  Serious: Yes (Death, Hospitalization)
  Sender: FDA-Public Use
  Company Number: 2023A251066

PATIENT
  Age: 47 Year
  Sex: Female
  Weight: 47 kg

DRUGS (11)
  1. TAGRISSO [Suspect]
     Active Substance: OSIMERTINIB
     Indication: Metastatic neoplasm
     Route: 048
     Dates: start: 20231017, end: 20231102
  2. METFORMIN HYDROCHLORIDE [Concomitant]
     Active Substance: METFORMIN HYDROCHLORIDE
     Route: 048
  3. IVABRAD [Concomitant]
  4. PAN 40 [Concomitant]
  5. UPRISE [Concomitant]
  6. ATORVASTATIN [Concomitant]
     Active Substance: ATORVASTATIN
  7. LEVOTHYROXINE [Concomitant]
     Active Substance: LEVOTHYROXINE
  8. VORICONAZOLE [Concomitant]
     Active Substance: VORICONAZOLE
  9. URSODIOL [Concomitant]
     Active Substance: URSODIOL
  10. TRESPIN [Concomitant]
  11. CYPON [Concomitant]

REACTIONS (3)
  - Dyspnoea [Fatal]
  - Platelet count decreased [Fatal]
  - Blood urine present [Fatal]
